FAERS Safety Report 9538436 (Version 1)
Quarter: 2013Q3

REPORT INFORMATION
  Report Type: Spontaneous
  Country: US (occurrence: None)
  Receive Date: 20130918
  Receipt Date: 20130918
  Transmission Date: 20140515
  Serious: Yes (Other)
  Sender: FDA-Public Use
  Company Number: None

PATIENT
  Age: 0 Day
  Sex: Male
  Weight: .91 kg

DRUGS (3)
  1. PAROXITINE [Suspect]
     Indication: ANXIETY
     Dosage: 30 PILLS, ONCE DAILY
     Route: 048
     Dates: start: 20130227, end: 20130328
  2. VISTRAIL [Concomitant]
  3. PRENATAL [Concomitant]

REACTIONS (3)
  - Premature baby [None]
  - Maternal drugs affecting foetus [None]
  - Blindness [None]
